FAERS Safety Report 16978023 (Version 2)
Quarter: 2019Q4

REPORT INFORMATION
  Report Type: Spontaneous
  Country: ES (occurrence: ES)
  Receive Date: 20191031
  Receipt Date: 20191119
  Transmission Date: 20200122
  Serious: No
  Sender: FDA-Public Use
  Company Number: ES-ROCHE-2451246

PATIENT
  Age: 49 Year
  Sex: Male

DRUGS (6)
  1. OCREVUS [Suspect]
     Active Substance: OCRELIZUMAB
     Indication: PRIMARY PROGRESSIVE MULTIPLE SCLEROSIS
     Route: 065
     Dates: start: 20190627
  2. LIORESAL [Concomitant]
     Active Substance: BACLOFEN
     Indication: PRIMARY PROGRESSIVE MULTIPLE SCLEROSIS
  3. OMNIC [Concomitant]
     Active Substance: TAMSULOSIN HYDROCHLORIDE
     Dosage: SPHINCTER DISORDERS SECONDARY TO MULTIPLE SCLEROSIS
     Route: 065
  4. URBASON [METHYLPREDNISOLONE] [Concomitant]
     Active Substance: METHYLPREDNISOLONE
     Dosage: MULTIPLE SCLEROSIS SYMPTOMS
     Route: 040
     Dates: start: 20190722, end: 20190724
  5. OCREVUS [Suspect]
     Active Substance: OCRELIZUMAB
     Route: 065
     Dates: start: 20190711
  6. SATIVEX [Concomitant]
     Active Substance: NABIXIMOLS
     Indication: PRIMARY PROGRESSIVE MULTIPLE SCLEROSIS

REACTIONS (1)
  - Herpes virus infection [Not Recovered/Not Resolved]

NARRATIVE: CASE EVENT DATE: 201909
